FAERS Safety Report 9342556 (Version 2)
Quarter: 2014Q1

REPORT INFORMATION
  Report Type: Spontaneous
  Country: AT (occurrence: AT)
  Receive Date: 20130611
  Receipt Date: 20140213
  Transmission Date: 20141002
  Serious: Yes (Other)
  Sender: FDA-Public Use
  Company Number: AT-PFIZER INC-2013170797

PATIENT
  Age: 20 Year
  Sex: Male

DRUGS (12)
  1. ZELDOX [Suspect]
     Dosage: 40 MG, 1X/DAY
     Dates: start: 20130312, end: 20130312
  2. ZELDOX [Suspect]
     Dosage: 60 MG, 1X/DAY
     Dates: start: 20130313, end: 20130327
  3. TRITTICO RETARD [Suspect]
     Dosage: 150 MG, 1X/DAY
     Dates: start: 20130312, end: 20130312
  4. TRITTICO RETARD [Suspect]
     Dosage: 300 MG, 1X/DAY
     Dates: start: 20130313, end: 20130313
  5. CIPRALEX [Suspect]
     Dosage: 10 MG, 1X/DAY
     Dates: start: 20130220, end: 20130228
  6. CIPRALEX [Suspect]
     Dosage: 10 MG, 1X/DAY
     Dates: start: 20130306, end: 20130310
  7. CIPRALEX [Suspect]
     Dosage: 20 MG, DAILY
     Dates: start: 20130311
  8. RISPERDAL [Concomitant]
     Dosage: 4 MG, DAILY
     Dates: start: 20130220, end: 20130225
  9. RISPERDAL [Concomitant]
     Dosage: 3 MG, DAILY
     Dates: start: 20130226, end: 20130311
  10. RISPERDAL [Concomitant]
     Dosage: 1 MG, DAILY
     Dates: start: 20130312, end: 20130312
  11. DOMINAL FORTE [Concomitant]
     Dosage: 80 MG, DAILY
     Dates: start: 20130311, end: 20130311
  12. NICORETTE INHALER [Concomitant]
     Dosage: UNK MG, 1X/DAY
     Dates: start: 20130301

REACTIONS (4)
  - Loss of consciousness [Recovered/Resolved]
  - Fall [Recovered/Resolved]
  - Dizziness [Recovered/Resolved]
  - Sleep disorder [Unknown]
